FAERS Safety Report 20825885 (Version 1)
Quarter: 2022Q2

REPORT INFORMATION
  Report Type: Spontaneous
  Country: US (occurrence: None)
  Receive Date: 20220512
  Receipt Date: 20220512
  Transmission Date: 20220720
  Serious: Yes (Other)
  Sender: FDA-Public Use
  Company Number: None

PATIENT
  Sex: Female

DRUGS (2)
  1. LEUPROLIDE [Suspect]
     Active Substance: LEUPROLIDE
     Indication: Infertility
     Dosage: OTHER QUANTITY : 1 MG/0.2ML;?FREQUENCY : DAILY;?
     Route: 058
     Dates: start: 20210420
  2. LOVENOX INJ [Concomitant]

REACTIONS (5)
  - Maternal exposure during pregnancy [None]
  - Foetal exposure during pregnancy [None]
  - Abortion spontaneous [None]
  - Pulmonary embolism [None]
  - Thrombosis [None]
